FAERS Safety Report 14599755 (Version 1)
Quarter: 2018Q1

REPORT INFORMATION
  Report Type: Report from Study
  Country: SE (occurrence: SE)
  Receive Date: 20180305
  Receipt Date: 20180305
  Transmission Date: 20180509
  Serious: Yes (Hospitalization)
  Sender: FDA-Public Use
  Company Number: SE-PFIZER INC-2018086830

PATIENT

DRUGS (2)
  1. SPIRONOLACTONE. [Suspect]
     Active Substance: SPIRONOLACTONE
     Dosage: UNK
  2. FUROSEMIDE. [Suspect]
     Active Substance: FUROSEMIDE
     Dosage: UNK

REACTIONS (2)
  - Fatigue [Unknown]
  - Urinary tract infection [Unknown]
